FAERS Safety Report 5805147-0 (Version None)
Quarter: 2008Q3

REPORT INFORMATION
  Report Type: 
  Country: None (occurrence: None)
  Receive Date: 20080709
  Receipt Date: 20080701
  Transmission Date: 20090109
  Serious: Yes (Other)
  Sender: FDA-Public Use
  Company Number: GB-ALLERGAN-0808097US

PATIENT
  Sex: Female

DRUGS (4)
  1. TIMOLOL MALEATE SOL UNSPECIFID [Suspect]
     Indication: GLAUCOMA
     Route: 047
  2. APRACLONIDINE [Suspect]
     Indication: GLAUCOMA
     Route: 047
  3. LATANOPROST [Suspect]
     Indication: GLAUCOMA
     Route: 047
  4. INSULIN [Concomitant]
     Indication: TYPE 1 DIABETES MELLITUS

REACTIONS (1)
  - DRUG INEFFECTIVE [None]
